FAERS Safety Report 10157966 (Version 3)
Quarter: 2014Q2

REPORT INFORMATION
  Report Type: Report from Study
  Country: BR (occurrence: BR)
  Receive Date: 20140507
  Receipt Date: 20140613
  Transmission Date: 20141212
  Serious: Yes (Other)
  Sender: FDA-Public Use
  Company Number: BR-GLAXOSMITHKLINE-A1072179A

PATIENT
  Age: 6 Year
  Sex: Female
  Weight: 26 kg

DRUGS (2)
  1. FLIXOTIDE [Suspect]
     Indication: ASTHMATIC CRISIS
     Route: 065
     Dates: start: 201210
  2. AEROLIN [Suspect]
     Indication: ASTHMATIC CRISIS
     Route: 065
     Dates: start: 201204

REACTIONS (3)
  - Asthmatic crisis [Recovered/Resolved]
  - Drug administration error [Not Recovered/Not Resolved]
  - Cough [Recovered/Resolved]
